FAERS Safety Report 5931769-2 (Version None)
Quarter: 2008Q4

REPORT INFORMATION
  Report Type: 
  Country: None (occurrence: None)
  Receive Date: 20081027
  Receipt Date: 20081017
  Transmission Date: 20090506
  Serious: Yes (Other)
  Sender: FDA-Public Use
  Company Number: GB-PFIZER INC-2008041331

PATIENT
  Sex: Female
  Weight: 55 kg

DRUGS (5)
  1. DEPO-PROVERA SUSPENSION/INJ [Suspect]
     Indication: CONTRACEPTION
     Route: 030
     Dates: start: 19990601, end: 19990601
  2. DEPO-PROVERA SUSPENSION/INJ [Suspect]
     Route: 030
     Dates: start: 20070912, end: 20070912
  3. DEPO-PROVERA SUSPENSION/INJ [Suspect]
     Route: 030
     Dates: start: 20071207, end: 20071207
  4. DEPO-PROVERA SUSPENSION/INJ [Suspect]
     Route: 030
     Dates: start: 20080229, end: 20080229
  5. DEPO-PROVERA SUSPENSION/INJ [Suspect]
     Dosage: TEXT:150 MG/ML

REACTIONS (4)
  - DRUG INEFFECTIVE [None]
  - PREGNANCY WITH IMPLANT CONTRACEPTIVE [None]
  - THROMBOCYTOPENIC PURPURA [None]
  - UNINTENDED PREGNANCY [None]
